FAERS Safety Report 10066625 (Version 2)
Quarter: 2014Q2

REPORT INFORMATION
  Report Type: Report from Study
  Country: US (occurrence: US)
  Receive Date: 20140408
  Receipt Date: 20140414
  Transmission Date: 20141212
  Serious: Yes (Other)
  Sender: FDA-Public Use
  Company Number: PHEH2014US006620

PATIENT
  Sex: Female

DRUGS (6)
  1. GILENYA [Suspect]
     Indication: MULTIPLE SCLEROSIS
     Dosage: 0.5 MG, QD
     Route: 048
     Dates: start: 20110922
  2. OXYBUTIN [Concomitant]
  3. LAMICTAL [Concomitant]
  4. CYMBALTA [Concomitant]
  5. CLONAZEPAM [Concomitant]
  6. MODAFINIL [Concomitant]

REACTIONS (1)
  - Neoplasm malignant [Unknown]
